FAERS Safety Report 14237999 (Version 2)
Quarter: 2018Q1

REPORT INFORMATION
  Report Type: Spontaneous
  Country: IT (occurrence: IT)
  Receive Date: 20171130
  Receipt Date: 20180214
  Transmission Date: 20180508
  Serious: Yes (Other)
  Sender: FDA-Public Use
  Company Number: IT-WEST-WARD PHARMACEUTICALS CORP.-3222794

PATIENT
  Age: 69 Year
  Sex: Male

DRUGS (8)
  1. PEGYLATED LIPOSOMAL IRINOTECAN [Suspect]
     Active Substance: IRINOTECAN HYDROCHLORIDE
     Indication: ADENOCARCINOMA OF COLON
     Route: 042
     Dates: start: 20151210, end: 20160321
  2. DOXIFLURIDINE [Suspect]
     Active Substance: DOXIFLURIDINE
     Route: 042
     Dates: start: 20160209, end: 20160209
  3. DOXIFLURIDINE [Suspect]
     Active Substance: DOXIFLURIDINE
     Indication: ADENOCARCINOMA OF COLON
     Dosage: 716 MG, CYCLE1, FREQ: CYCLICAL
     Route: 042
     Dates: start: 20151210, end: 20151210
  4. DOXIFLURIDINE [Suspect]
     Active Substance: DOXIFLURIDINE
     Route: 042
     Dates: start: 20160209, end: 20160209
  5. DOXIFLURIDINE [Suspect]
     Active Substance: DOXIFLURIDINE
     Route: 042
     Dates: start: 20151210, end: 20151210
  6. CALCIUM LEVOFOLINATE [Concomitant]
     Active Substance: LEVOLEUCOVORIN CALCIUM
     Indication: ADENOCARCINOMA OF COLON
     Dosage: 358 MG, CYCLE1, FREQ: CYCLICAL
     Route: 042
     Dates: start: 20151210, end: 20151210
  7. ZALTRAP [Suspect]
     Active Substance: ZIV-AFLIBERCEPT
     Indication: ADENOCARCINOMA OF COLON
     Dosage: 280 MG, CYCLE1, FREQ: CYCLICAL
     Route: 042
     Dates: start: 20151210, end: 20160321
  8. CALCIUM LEVOFOLINATE [Concomitant]
     Active Substance: LEVOLEUCOVORIN CALCIUM
     Dosage: 358 MG, CYCLE5, FREQ: CYCLICAL
     Route: 042
     Dates: start: 20160209, end: 20160209

REACTIONS (3)
  - Epistaxis [Unknown]
  - Diarrhoea [Unknown]
  - Asthenia [Unknown]

NARRATIVE: CASE EVENT DATE: 20160229
